FAERS Safety Report 4517954-5 (Version None)
Quarter: 2004Q4

REPORT INFORMATION
  Report Type: 
  Country: None (occurrence: None)
  Receive Date: 20041130
  Receipt Date: 20041124
  Transmission Date: 20050328
  Serious: Yes (Death)
  Sender: FDA-Public Use
  Company Number: 200409146

PATIENT
  Age: 52 Year
  Sex: Male

DRUGS (6)
  1. STREPTASE [Suspect]
     Indication: MYOCARDIAL INFARCTION
     Dosage: 1.2 MIU DAILY IV
     Route: 042
     Dates: start: 20040819, end: 20040819
  2. ASPIRIN [Suspect]
     Indication: MYOCARDIAL INFARCTION
     Dosage: 325 MG DAILY PO
     Route: 048
     Dates: start: 20040819, end: 20040820
  3. CLOPIDOGREL [Concomitant]
  4. SIMVASTATIN [Concomitant]
  5. SENOKOT [Concomitant]
  6. OMEPRAZOLE [Concomitant]

REACTIONS (3)
  - CARDIOGENIC SHOCK [None]
  - DRUG INEFFECTIVE [None]
  - ELECTROCARDIOGRAM ST SEGMENT ELEVATION [None]
